FAERS Safety Report 24603453 (Version 2)
Quarter: 2024Q4

REPORT INFORMATION
  Report Type: Spontaneous
  Country: JP (occurrence: JP)
  Receive Date: 20241111
  Receipt Date: 20241122
  Transmission Date: 20250115
  Serious: Yes (Death, Hospitalization)
  Sender: TEVA
  Company Number: JP-TEVA-VS-3261862

PATIENT
  Age: 76 Year
  Sex: Male

DRUGS (7)
  1. IRINOTECAN [Suspect]
     Active Substance: IRINOTECAN
     Indication: Oesophageal carcinoma
     Route: 065
  2. TIPIRACIL HYDROCHLORIDE\TRIFLURIDINE [Suspect]
     Active Substance: TIPIRACIL HYDROCHLORIDE\TRIFLURIDINE
     Indication: Oesophageal carcinoma
     Route: 065
  3. OXALIPLATIN [Suspect]
     Active Substance: OXALIPLATIN
     Indication: Oesophageal carcinoma
     Route: 065
  4. GIMERACIL\OTERACIL\TEGAFUR [Suspect]
     Active Substance: GIMERACIL\OTERACIL POTASSIUM\TEGAFUR
     Indication: Oesophageal carcinoma
     Route: 065
  5. PACLITAXEL [Suspect]
     Active Substance: PACLITAXEL
     Indication: Oesophageal carcinoma
     Route: 065
  6. NIVOLUMAB [Suspect]
     Active Substance: NIVOLUMAB
     Indication: Oesophageal carcinoma
     Route: 065
  7. RAMUCIRUMAB [Suspect]
     Active Substance: RAMUCIRUMAB
     Indication: Oesophageal carcinoma
     Route: 065

REACTIONS (4)
  - Haematoma [Fatal]
  - Gastrointestinal disorder [Fatal]
  - Drug ineffective [Unknown]
  - Cerebral artery embolism [Fatal]
